FAERS Safety Report 10458988 (Version 1)
Quarter: 2014Q3

REPORT INFORMATION
  Report Type: Spontaneous
  Country: US (occurrence: None)
  Receive Date: 20140915
  Receipt Date: 20140915
  Transmission Date: 20150326
  Serious: No
  Sender: FDA-Public Use
  Company Number: UNT-2014-005622

PATIENT
  Age: 68 Year
  Sex: Female

DRUGS (1)
  1. TYVASO [Suspect]
     Active Substance: TREPROSTINIL
     Indication: PULMONARY ARTERIAL HYPERTENSION
     Route: 055
     Dates: start: 20130806

REACTIONS (5)
  - Dizziness [None]
  - Cough [None]
  - Device malfunction [None]
  - Dysgeusia [None]
  - Extra dose administered [None]
